FAERS Safety Report 6442561-7 (Version None)
Quarter: 2009Q4

REPORT INFORMATION
  Report Type: 
  Country: None (occurrence: None)
  Receive Date: 20091117
  Receipt Date: 20091112
  Transmission Date: 20100525
  Serious: Yes (Hospitalization)
  Sender: FDA-Public Use
  Company Number: US-JNJFOC-20091103946

PATIENT
  Age: 36 Year
  Sex: Male

DRUGS (1)
  1. FLEXERIL [Suspect]
     Indication: MUSCULOSKELETAL PAIN

REACTIONS (2)
  - NEUROLEPTIC MALIGNANT SYNDROME [None]
  - OVERDOSE [None]
